FAERS Safety Report 8373962-8 (Version None)
Quarter: 2012Q2

REPORT INFORMATION
  Report Type: 
  Country: None (occurrence: None)
  Receive Date: 20120521
  Receipt Date: 20120515
  Transmission Date: 20120825
  Serious: Yes (Disabling)
  Sender: FDA-Public Use
  Company Number: PHHY2012GB041274

PATIENT
  Age: 63 Year
  Sex: Male

DRUGS (9)
  1. TOPIRAMATE [Suspect]
     Dosage: 100 MG, BID
     Route: 048
     Dates: start: 20120227
  2. RANITIDINE [Concomitant]
  3. LIDOCAINE [Concomitant]
     Dosage: 15 ML, QH
     Route: 042
  4. ADALAT CC [Concomitant]
     Dosage: UNK
  5. LIDOCAINE [Concomitant]
     Dosage: 30 ML, QH
  6. TAMSULOSIN HCL [Concomitant]
  7. TOPIRAMATE [Suspect]
     Dosage: 25 MG, BID
     Route: 048
     Dates: end: 20120330
  8. ATORVASTATIN CALCIUM [Concomitant]
  9. LAMOTRIGINE [Concomitant]
     Indication: HEADACHE
     Dosage: 250 MG, BID

REACTIONS (5)
  - LETHARGY [None]
  - NIGHT SWEATS [None]
  - DEPRESSED MOOD [None]
  - ANGER [None]
  - MEMORY IMPAIRMENT [None]
